FAERS Safety Report 24071440 (Version 1)
Quarter: 2024Q3

REPORT INFORMATION
  Report Type: Report from Study
  Country: CA (occurrence: CA)
  Receive Date: 20240710
  Receipt Date: 20240710
  Transmission Date: 20241017
  Serious: No
  Sender: ROCHE
  Company Number: CA-ROCHE-3469848

PATIENT
  Age: 4 Year
  Sex: Male

DRUGS (2)
  1. EVRYSDI [Suspect]
     Active Substance: RISDIPLAM
     Indication: Spinal muscular atrophy
     Route: 048
     Dates: start: 20230610
  2. CUVPOSA [GLYCOPYRRONIUM] [Concomitant]

REACTIONS (3)
  - Intercepted product storage error [Unknown]
  - Scoliosis [Unknown]
  - Ill-defined disorder [Unknown]
